FAERS Safety Report 6544638-4 (Version None)
Quarter: 2010Q1

REPORT INFORMATION
  Report Type: 
  Country: None (occurrence: None)
  Receive Date: 20100121
  Receipt Date: 20100118
  Transmission Date: 20100710
  Serious: Yes (Other)
  Sender: FDA-Public Use
  Company Number: PHHY2009BR52007

PATIENT
  Age: 45 Year
  Sex: Female
  Weight: 66 kg

DRUGS (2)
  1. FORASEQ [Suspect]
     Indication: BRONCHITIS CHRONIC
     Dosage: UNK
     Dates: start: 20091101
  2. FORASEQ [Suspect]
     Indication: EMPHYSEMA

REACTIONS (7)
  - CLAVICLE FRACTURE [None]
  - DEVICE MALFUNCTION [None]
  - DRUG ADMINISTRATION ERROR [None]
  - DYSPNOEA [None]
  - IMPATIENCE [None]
  - MOBILITY DECREASED [None]
  - TREATMENT NONCOMPLIANCE [None]
